FAERS Safety Report 14248708 (Version 4)
Quarter: 2018Q2

REPORT INFORMATION
  Report Type: Report from Study
  Country: DE (occurrence: DE)
  Receive Date: 20171204
  Receipt Date: 20180418
  Transmission Date: 20180711
  Serious: Yes (Hospitalization)
  Sender: FDA-Public Use
  Company Number: DE-PFIZER INC-2017515387

PATIENT
  Age: 65 Year
  Sex: Female
  Weight: 51 kg

DRUGS (11)
  1. PACLITAXEL. [Suspect]
     Active Substance: PACLITAXEL
     Indication: OVARIAN CANCER
     Dosage: 295.75 MG, EVERY 3 WEEKS; LAST DOSE PRIOR TO EVENT 13/NOV/2012
     Route: 042
     Dates: start: 20120910
  2. AVASTIN [Suspect]
     Active Substance: BEVACIZUMAB
     Dosage: 795 MG, UNK (MOST RECENT DOSE PRIOR TO DEEP VEIN THROMBOSIS)
     Route: 042
     Dates: start: 20121113, end: 20121113
  3. CARBOPLATIN. [Suspect]
     Active Substance: CARBOPLATIN
     Dosage: 359.96 MG, EVERY 3 WEEKS; LAST DOSE PRIOR TO EVENT 13/NOV/2012
     Route: 042
     Dates: start: 20120910
  4. PACLITAXEL. [Suspect]
     Active Substance: PACLITAXEL
     Dosage: 274.75 MG, EVERY 3 WEEKS
     Route: 042
     Dates: start: 20121023
  5. AVASTIN [Suspect]
     Active Substance: BEVACIZUMAB
     Dosage: 795 MG, UNK
     Route: 042
     Dates: start: 20121023
  6. AVASTIN [Suspect]
     Active Substance: BEVACIZUMAB
     Indication: OVARIAN CANCER
     Dosage: 795 MG, EVERY 3 WEEKS; LAST DOSE PRIOR TO EVENT 13/NOV/2012
     Route: 042
     Dates: start: 20121002
  7. CARBOPLATIN. [Suspect]
     Active Substance: CARBOPLATIN
     Indication: OVARIAN CANCER
     Dosage: 422.88 MG, UNK
     Route: 042
     Dates: start: 20121023
  8. BISOPROLOL [Concomitant]
     Active Substance: BISOPROLOL
     Indication: HYPERTENSION
     Dosage: LAST DOSE PRIOR TO EVENT 02NOV2012
     Route: 048
     Dates: start: 20121012
  9. PACLITAXEL. [Suspect]
     Active Substance: PACLITAXEL
     Dosage: 274.75 MG, LAST DOSE PRIOR TO EVENT 13NOV2012
     Route: 042
     Dates: start: 20121113
  10. PACLITAXEL. [Suspect]
     Active Substance: PACLITAXEL
     Dosage: 274.75 MG, EVERY 3 WEEKS
     Route: 042
     Dates: start: 20121002
  11. CARBOPLATIN. [Suspect]
     Active Substance: CARBOPLATIN
     Dosage: 383.36 MG, LAST DOSE PRIOR TO EVENT 13NOV2012
     Route: 042
     Dates: start: 20121113

REACTIONS (5)
  - Deep vein thrombosis [Recovered/Resolved]
  - Leukopenia [Recovered/Resolved]
  - Pyrexia [Recovered/Resolved]
  - Tachycardia [Recovered/Resolved]
  - Urinary tract infection [Recovered/Resolved]

NARRATIVE: CASE EVENT DATE: 20121101
